FAERS Safety Report 12849076 (Version 1)
Quarter: 2016Q4

REPORT INFORMATION
  Report Type: Spontaneous
  Country: CA (occurrence: CA)
  Receive Date: 20161014
  Receipt Date: 20161014
  Transmission Date: 20170207
  Serious: Yes (Hospitalization, Other)
  Sender: FDA-Public Use
  Company Number: CA-PAR PHARMACEUTICAL COMPANIES-2016SCPR015942

PATIENT
  Age: 23 Year
  Sex: Male

DRUGS (2)
  1. KETALAR [Suspect]
     Active Substance: KETAMINE HYDROCHLORIDE
     Indication: PRODUCT USED FOR UNKNOWN INDICATION
     Dosage: UNK UNK, UNKNOWN
     Route: 065
  2. HYDROMORPH CONTIN [Suspect]
     Active Substance: HYDROMORPHONE
     Indication: PRODUCT USED FOR UNKNOWN INDICATION
     Dosage: UNK UNK, UNKNOWN
     Route: 065

REACTIONS (6)
  - Rhabdomyolysis [Unknown]
  - Myositis [Unknown]
  - Brain scan abnormal [Unknown]
  - Substance abuse [Unknown]
  - Blood creatine phosphokinase increased [Unknown]
  - Drug dependence [Unknown]
